FAERS Safety Report 5572917-6 (Version None)
Quarter: 2007Q4

REPORT INFORMATION
  Report Type: 
  Country: None (occurrence: None)
  Receive Date: 20071219
  Receipt Date: 20071219
  Transmission Date: 20080405
  Serious: Yes (Hospitalization)
  Sender: FDA-Public Use
  Company Number: None

PATIENT
  Age: 26 Year
  Sex: Male
  Weight: 81.6475 kg

DRUGS (5)
  1. RISPERIDONE [Suspect]
     Dosage: 2-3 MG  PO
     Route: 048
  2. LORAZEPAM [Concomitant]
  3. HALOPERIDOL [Concomitant]
  4. DEPAKOTE [Concomitant]
  5. CLONAZEPAM [Concomitant]

REACTIONS (2)
  - DEHYDRATION [None]
  - RHABDOMYOLYSIS [None]
